FAERS Safety Report 22023701 (Version 1)
Quarter: 2023Q1

REPORT INFORMATION
  Report Type: Spontaneous
  Country: IT (occurrence: IT)
  Receive Date: 20230223
  Receipt Date: 20230223
  Transmission Date: 20230418
  Serious: Yes (Hospitalization, Other)
  Sender: FDA-Public Use
  Company Number: IT-ENDO PHARMACEUTICALS INC-2023-000549

PATIENT
  Age: 44 Year
  Sex: Female

DRUGS (2)
  1. AVEED [Suspect]
     Active Substance: TESTOSTERONE UNDECANOATE
     Indication: Trans-sexualism
     Dosage: 250 MG, Q3W
     Route: 030
     Dates: start: 2005
  2. TAMOXIFEN [Concomitant]
     Active Substance: TAMOXIFEN
     Indication: Product used for unknown indication
     Dosage: 20 MG, DAILY
     Route: 065
     Dates: start: 2006

REACTIONS (5)
  - Ventricular hypokinesia [Recovered/Resolved]
  - Cardiac ventricular thrombosis [Recovered/Resolved]
  - Acute myocardial infarction [Recovered/Resolved]
  - Contraindicated product administered [Unknown]
  - Off label use [Unknown]
